FAERS Safety Report 19060388 (Version 2)
Quarter: 2021Q1

REPORT INFORMATION
  Report Type: Report from Study
  Country: US (occurrence: US)
  Receive Date: 20210325
  Receipt Date: 20210326
  Transmission Date: 20210420
  Serious: Yes (Hospitalization)
  Sender: FDA-Public Use
  Company Number: US-PFIZER INC-2021269584

PATIENT
  Age: 79 Year
  Sex: Female
  Weight: 43.8 kg

DRUGS (2)
  1. VINORELBINE [Suspect]
     Active Substance: VINORELBINE TARTRATE
     Dosage: 25 MG/M2, D1, D8, D15
     Route: 042
     Dates: start: 20200311
  2. TRASTUZUMAB. [Suspect]
     Active Substance: TRASTUZUMAB
     Indication: BREAST CANCER
     Dosage: 4 MG/KG, D1, D15
     Route: 042
     Dates: start: 20200311

REACTIONS (3)
  - Urinary incontinence [Unknown]
  - Anal incontinence [Unknown]
  - Lethargy [Unknown]

NARRATIVE: CASE EVENT DATE: 20210315
